FAERS Safety Report 22641715 (Version 1)
Quarter: 2023Q2

REPORT INFORMATION
  Report Type: Report from Study
  Country: US (occurrence: US)
  Receive Date: 20230626
  Receipt Date: 20230626
  Transmission Date: 20230722
  Serious: Yes (Congenital Anomaly)
  Sender: FDA-Public Use
  Company Number: US-PFIZER INC-PV202300109666

PATIENT
  Age: 3 Month
  Sex: Male
  Weight: 3.345 kg

DRUGS (8)
  1. XELJANZ [Suspect]
     Active Substance: TOFACITINIB CITRATE
     Indication: Colitis ulcerative
     Dosage: 10 MG, 2X/DAY
     Route: 064
     Dates: start: 20200701, end: 20200731
  2. XELJANZ [Suspect]
     Active Substance: TOFACITINIB CITRATE
     Dosage: 10 MG, 2X/DAY
     Route: 064
     Dates: start: 20210801, end: 20220518
  3. HUMIRA [Concomitant]
     Active Substance: ADALIMUMAB
     Indication: Colitis ulcerative
     Dosage: UNK
     Route: 064
     Dates: start: 20190701, end: 20190701
  4. REMICADE [Concomitant]
     Active Substance: INFLIXIMAB
     Indication: Colitis ulcerative
     Dosage: UNK
     Route: 064
     Dates: start: 20180701, end: 20190701
  5. SERTRALINE HYDROCHLORIDE [Concomitant]
     Active Substance: SERTRALINE HYDROCHLORIDE
     Indication: Depression
     Dosage: 50 MG, 1X/DAY
     Route: 064
     Dates: start: 20210827, end: 20220518
  6. TUMS [Concomitant]
     Active Substance: CALCIUM CARBONATE
     Indication: Dyspepsia
     Dosage: 2 PILL, 1X/DAY
     Route: 064
     Dates: start: 20220131, end: 20220411
  7. MODERNA COVID-19 VACCINE [Concomitant]
     Active Substance: ELASOMERAN
     Dosage: 1 SHOT, SINGLE
     Route: 064
     Dates: start: 20220101, end: 20220101
  8. TETANUS TOXOID, REDUCED DIPHTHERIA TOXOID AND ACELLULAR PERTUSSIS VACC [Concomitant]
     Active Substance: TETANUS TOXOID, REDUCED DIPHTHERIA TOXOID AND ACELLULAR PERTUSSIS VACCINE ADSORBED, TDAP
     Dosage: 1 SHOT BOOSTER, SINGLE
     Route: 064
     Dates: start: 20220311, end: 20220311

REACTIONS (3)
  - Maternal exposure during pregnancy [Unknown]
  - Univentricular heart [Unknown]
  - Cardiac murmur [Unknown]
